FAERS Safety Report 5846819-1 (Version None)
Quarter: 2008Q3

REPORT INFORMATION
  Report Type: 
  Country: None (occurrence: None)
  Receive Date: 20080815
  Receipt Date: 20080723
  Transmission Date: 20090109
  Serious: Yes (Disabling, Other)
  Sender: FDA-Public Use
  Company Number: PHHY2008GB15617

PATIENT
  Age: 64 Year
  Sex: Male

DRUGS (5)
  1. DARIFENACIN [Suspect]
     Indication: HYPERTONIC BLADDER
     Dosage: 7.5 MG/DAY
     Dates: start: 20080607, end: 20080702
  2. CLONAZEPAM [Concomitant]
     Indication: MUSCLE SPASMS
     Dosage: UNK
     Route: 048
     Dates: start: 20070101
  3. SOLIFENACIN [Concomitant]
     Indication: HYPERTONIC BLADDER
     Dosage: 5 MG/DAY
     Dates: start: 20070514, end: 20070606
  4. TIZANIDINE HCL [Concomitant]
     Indication: MUSCLE SPASTICITY
     Dosage: 4 MG, BID
     Route: 048
  5. ZOPICLONE [Concomitant]
     Indication: INSOMNIA
     Dosage: 7.5 MG/DAY
     Route: 048
     Dates: start: 20070101

REACTIONS (3)
  - MOBILITY DECREASED [None]
  - MUSCULOSKELETAL STIFFNESS [None]
  - PAIN IN EXTREMITY [None]
